FAERS Safety Report 18520764 (Version 2)
Quarter: 2021Q1

REPORT INFORMATION
  Report Type: Spontaneous
  Country: US (occurrence: US)
  Receive Date: 20201119
  Receipt Date: 20210309
  Transmission Date: 20210419
  Serious: Yes (Life-Threatening, Hospitalization, Other)
  Sender: FDA-Public Use
  Company Number: US-DRREDDYS-USA/USA/20/0128967

PATIENT
  Age: 52 Year
  Sex: Female

DRUGS (6)
  1. AMIODARONE HYDROCHLORIDE. [Suspect]
     Active Substance: AMIODARONE HYDROCHLORIDE
     Indication: ARRHYTHMIA PROPHYLAXIS
     Route: 048
  2. HEPARIN SODIUM. [Suspect]
     Active Substance: HEPARIN SODIUM
     Dosage: 10 DAYS BEFORE SURGERY
  3. HEPARIN SODIUM. [Suspect]
     Active Substance: HEPARIN SODIUM
     Indication: THROMBOSIS PROPHYLAXIS
     Route: 058
  4. AMIODARONE HYDROCHLORIDE. [Suspect]
     Active Substance: AMIODARONE HYDROCHLORIDE
     Route: 048
  5. AMIODARONE HYDROCHLORIDE. [Suspect]
     Active Substance: AMIODARONE HYDROCHLORIDE
     Indication: ATRIAL FIBRILLATION
     Dosage: 2 150?MG BOLUSES
     Route: 040
  6. HEPARIN SODIUM. [Suspect]
     Active Substance: HEPARIN SODIUM
     Indication: ANTICOAGULANT THERAPY

REACTIONS (9)
  - Drug-induced liver injury [Recovered/Resolved]
  - Respiratory alkalosis [Recovered/Resolved]
  - Nosocomial infection [Recovered/Resolved]
  - Hypogammaglobulinaemia [Recovered/Resolved]
  - Hypoglycaemia [Recovered/Resolved]
  - Mixed liver injury [Recovered/Resolved]
  - Encephalopathy [Recovered/Resolved]
  - Drug hypersensitivity [Recovered/Resolved]
  - Hepatotoxicity [Recovered/Resolved]
